FAERS Safety Report 23225610 (Version 1)
Quarter: 2023Q4

REPORT INFORMATION
  Report Type: Spontaneous
  Country: US (occurrence: None)
  Receive Date: 20231124
  Receipt Date: 20231124
  Transmission Date: 20240110
  Serious: Yes (Hospitalization, Other)
  Sender: FDA-Public Use
  Company Number: 2023A263741

PATIENT
  Sex: Male

DRUGS (13)
  1. TEZSPIRE [Suspect]
     Active Substance: TEZEPELUMAB-EKKO
     Indication: Asthma
     Route: 058
  2. TEMAZEPAM [Concomitant]
     Active Substance: TEMAZEPAM
  3. ALBUTEROL [Concomitant]
     Active Substance: ALBUTEROL
  4. LISINOPRIL [Concomitant]
     Active Substance: LISINOPRIL
  5. DIAZEPAM [Concomitant]
     Active Substance: DIAZEPAM
  6. FUROSEMIDE [Concomitant]
     Active Substance: FUROSEMIDE
  7. MONTELUKAST SODIUM [Concomitant]
     Active Substance: MONTELUKAST SODIUM
  8. SINGULAIR [Concomitant]
     Active Substance: MONTELUKAST SODIUM
  9. ATROVENT [Concomitant]
     Active Substance: IPRATROPIUM BROMIDE
  10. ASMANEX HFA [Concomitant]
     Active Substance: MOMETASONE FUROATE
  11. ELIQUIS [Concomitant]
     Active Substance: APIXABAN
  12. DULOXETINE HYDROCHLORIDE [Concomitant]
     Active Substance: DULOXETINE HYDROCHLORIDE
  13. DILTIAZEM HYDROCHLORIDE [Concomitant]
     Active Substance: DILTIAZEM HYDROCHLORIDE

REACTIONS (5)
  - Asthma [Unknown]
  - Illness [Unknown]
  - Lung disorder [Unknown]
  - Oxygen saturation decreased [Unknown]
  - Chest pain [Unknown]
